FAERS Safety Report 18627712 (Version 1)
Quarter: 2020Q4

REPORT INFORMATION
  Report Type: Spontaneous
  Country: US (occurrence: US)
  Receive Date: 20201216
  Receipt Date: 20201216
  Transmission Date: 20210114
  Serious: Yes (Other)
  Sender: FDA-Public Use
  Company Number: None

PATIENT
  Age: 34 Year
  Sex: Female

DRUGS (8)
  1. NORLYDA [Concomitant]
     Active Substance: NORETHINDRONE
  2. SERTRALINE [Concomitant]
     Active Substance: SERTRALINE HYDROCHLORIDE
  3. DICLOXACILL [Concomitant]
  4. CEPHALEXIN. [Concomitant]
     Active Substance: CEPHALEXIN
  5. NITROFURANTN [Concomitant]
     Active Substance: NITROFURANTOIN
  6. CLINDAMYCIN. [Concomitant]
     Active Substance: CLINDAMYCIN
  7. PREDNISONE. [Concomitant]
     Active Substance: PREDNISONE
  8. HUMIRA [Suspect]
     Active Substance: ADALIMUMAB
     Indication: ANKYLOSING SPONDYLITIS
     Dosage: ?          OTHER FREQUENCY:EVERY 2 WEEKS;?
     Route: 058
     Dates: start: 20191226

REACTIONS (4)
  - Therapy interrupted [None]
  - Foetal exposure during pregnancy [None]
  - Pregnancy [None]
  - Maternal exposure during pregnancy [None]
